FAERS Safety Report 12318513 (Version 1)
Quarter: 2016Q2

REPORT INFORMATION
  Report Type: Spontaneous
  Country: US (occurrence: None)
  Receive Date: 20160428
  Receipt Date: 20160428
  Transmission Date: 20160815
  Serious: No
  Sender: FDA-Public Use
  Company Number: None

PATIENT
  Age: 62 Year
  Sex: Male
  Weight: 68.6 kg

DRUGS (1)
  1. OLODATEROL [Suspect]
     Active Substance: OLODATEROL
     Indication: CHRONIC OBSTRUCTIVE PULMONARY DISEASE
     Dosage: 2 PUFF(S) EVERY DAY INHALE
     Route: 055
     Dates: start: 20160122, end: 20160209

REACTIONS (4)
  - Headache [None]
  - Respiratory depression [None]
  - Dizziness [None]
  - Palpitations [None]

NARRATIVE: CASE EVENT DATE: 20160209
